FAERS Safety Report 9062491 (Version 1)
Quarter: 2013Q1

REPORT INFORMATION
  Report Type: Report from Study
  Country: US (occurrence: US)
  Receive Date: 20130128
  Receipt Date: 20130128
  Transmission Date: 20140127
  Serious: No
  Sender: FDA-Public Use
  Company Number: US-ABBOTT-12P-163-0915775-00

PATIENT
  Age: 35 Year
  Sex: Female
  Weight: 97.61 kg

DRUGS (5)
  1. HUMIRA 40 MG/0.8 ML PEN [Suspect]
     Indication: RHEUMATOID ARTHRITIS
     Route: 058
     Dates: start: 2010
  2. ZOLOFT [Concomitant]
     Indication: DEPRESSION
  3. ATENOLOL [Concomitant]
     Indication: PROPHYLAXIS
  4. ATENOLOL [Concomitant]
     Indication: MIGRAINE
  5. LEVOTHYROXINE [Concomitant]
     Indication: HYPOTHYROIDISM

REACTIONS (1)
  - Rheumatoid arthritis [Not Recovered/Not Resolved]
